FAERS Safety Report 11983998 (Version 1)
Quarter: 2016Q1

REPORT INFORMATION
  Report Type: Spontaneous
  Country: GB (occurrence: GB)
  Receive Date: 20160201
  Receipt Date: 20160201
  Transmission Date: 20160526
  Serious: Yes (Life-Threatening)
  Sender: FDA-Public Use
  Company Number: GB-FRESENIUS KABI-FK201600463

PATIENT
  Age: 47 Year
  Sex: Female
  Weight: 65 kg

DRUGS (3)
  1. AMOXICILLIN/CLAVUNALIC ACID (MANUFACTURER UNKNOWN) [Suspect]
     Active Substance: AMOXICILLIN\CLAVULANIC ACID
     Indication: HYSTERECTOMY
     Route: 042
     Dates: start: 20141208, end: 20141208
  2. ROCURONIUM [Suspect]
     Active Substance: ROCURONIUM BROMIDE
     Indication: NEUROMUSCULAR BLOCKING THERAPY
     Route: 042
     Dates: start: 20141208, end: 20141208
  3. AMOXICILLIN/CLAVUNALIC ACID (MANUFACTURER UNKNOWN) [Suspect]
     Active Substance: AMOXICILLIN\CLAVULANIC ACID
     Indication: ANTIBIOTIC PROPHYLAXIS

REACTIONS (6)
  - Rash generalised [Recovered/Resolved]
  - Hypotension [Recovered/Resolved]
  - Oxygen saturation decreased [Recovered/Resolved]
  - Angioedema [Recovered/Resolved]
  - Swollen tongue [Recovered/Resolved]
  - Lip swelling [Recovered/Resolved]

NARRATIVE: CASE EVENT DATE: 20141208
